FAERS Safety Report 10129067 (Version 1)
Quarter: 2014Q2

REPORT INFORMATION
  Report Type: Spontaneous
  Country: US (occurrence: None)
  Receive Date: 20140425
  Receipt Date: 20140425
  Transmission Date: 20141212
  Serious: No
  Sender: FDA-Public Use
  Company Number: None

PATIENT
  Age: 74 Year
  Sex: Male
  Weight: 79.2 kg

DRUGS (2)
  1. GEMCITABINE [Suspect]
     Indication: BLADDER CANCER
     Dosage: DAY 1 + DAY 8
     Dates: start: 20140212
  2. CISPLATIN [Suspect]
     Indication: BLADDER CANCER
     Dosage: DAY 1 + DAY 8
     Dates: start: 20140212

REACTIONS (1)
  - Cerebrovascular accident [None]
